FAERS Safety Report 4535425-7 (Version None)
Quarter: 2004Q4

REPORT INFORMATION
  Report Type: 
  Country: None (occurrence: None)
  Receive Date: 20041222
  Receipt Date: 20041214
  Transmission Date: 20050328
  Serious: Yes (Hospitalization)
  Sender: FDA-Public Use
  Company Number: JP-MERCK-0412USA02140

PATIENT
  Age: 35 Year
  Sex: Male

DRUGS (3)
  1. PEPCID RPD [Suspect]
     Route: 048
     Dates: start: 20030801, end: 20041120
  2. PLETAL [Concomitant]
     Route: 048
     Dates: start: 20030801, end: 20041120
  3. CRAVIT [Concomitant]
     Route: 048
     Dates: start: 20041001, end: 20041120

REACTIONS (1)
  - NEPHRITIS INTERSTITIAL [None]
